FAERS Safety Report 14500264 (Version 5)
Quarter: 2018Q2

REPORT INFORMATION
  Report Type: Spontaneous
  Country: IT (occurrence: IT)
  Receive Date: 20180207
  Receipt Date: 20180607
  Transmission Date: 20180711
  Serious: Yes (Life-Threatening, Other)
  Sender: FDA-Public Use
  Company Number: IT-MYLANLABS-2018M1007783

PATIENT
  Age: 65 Year
  Sex: Male

DRUGS (6)
  1. OLIVE LEAF                         /01650004/ [Concomitant]
     Indication: PRODUCT USED FOR UNKNOWN INDICATION
     Dosage: UNK
  2. RAMIPRIL. [Suspect]
     Active Substance: RAMIPRIL
     Indication: HYPERTENSION
     Dosage: STOP DATE: UNK DATE IOF 2017 OR 2018
     Route: 065
  3. CARVEDILOL. [Suspect]
     Active Substance: CARVEDILOL
     Indication: HYPERTENSION
     Dosage: UNK
     Route: 065
  4. HYDROCHLOROTHIAZIDE/RAMIPRIL [Suspect]
     Active Substance: HYDROCHLOROTHIAZIDE\RAMIPRIL
     Route: 065
  5. DOXAZOSIN [Suspect]
     Active Substance: DOXAZOSIN\DOXAZOSIN MESYLATE
     Indication: HYPERTENSION
     Dosage: STOP DATE: UNK DATE OF 2017 OR 2018
     Route: 065
  6. HAWTHORN                           /01349301/ [Concomitant]
     Active Substance: HAWTHORN LEAF WITH FLOWER
     Indication: PRODUCT USED FOR UNKNOWN INDICATION
     Dosage: UNK

REACTIONS (18)
  - Gastric disorder [Recovering/Resolving]
  - Mouth breathing [Recovering/Resolving]
  - Bronchial disorder [Recovering/Resolving]
  - Abdominal discomfort [Unknown]
  - Abdominal distension [Recovering/Resolving]
  - Dyspnoea [Recovering/Resolving]
  - Cough [Recovering/Resolving]
  - Speech disorder [Recovering/Resolving]
  - Oesophageal disorder [Recovering/Resolving]
  - Salivary hypersecretion [Recovering/Resolving]
  - Respiratory disorder [Unknown]
  - Oesophageal discomfort [Recovering/Resolving]
  - Oedema peripheral [Recovering/Resolving]
  - Angioedema [Recovering/Resolving]
  - Orthostatic hypotension [Recovering/Resolving]
  - Somnolence [Recovering/Resolving]
  - Asthma [Recovering/Resolving]
  - Oedema peripheral [None]

NARRATIVE: CASE EVENT DATE: 20170101
